FAERS Safety Report 23304163 (Version 1)
Quarter: 2023Q4

REPORT INFORMATION
  Report Type: Spontaneous
  Country: US (occurrence: None)
  Receive Date: 20231218
  Receipt Date: 20231218
  Transmission Date: 20240110
  Serious: Yes (Death)
  Sender: FDA-Public Use
  Company Number: US-ROCHE-3475941

PATIENT
  Sex: Male

DRUGS (25)
  1. XOLAIR [Suspect]
     Active Substance: OMALIZUMAB
     Indication: Chronic respiratory failure
     Dosage: 150 MG/ML
     Route: 058
     Dates: start: 20170717
  2. XOLAIR [Suspect]
     Active Substance: OMALIZUMAB
  3. XOLAIR [Suspect]
     Active Substance: OMALIZUMAB
  4. AMLODIPINE [Concomitant]
     Active Substance: AMLODIPINE BESYLATE
     Dosage: B TAB 10MG
  5. ATORVASTATIN [Concomitant]
     Active Substance: ATORVASTATIN
     Dosage: TAB 40MG
  6. BREO ELLIPTA [Concomitant]
     Active Substance: FLUTICASONE FUROATE\VILANTEROL TRIFENATATE
     Dosage: AEP 100-25MC
  7. BUTALBITAL [Concomitant]
     Active Substance: BUTALBITAL
     Dosage: TAB 50-?325MG
  8. CHLORHEXIDINE [Concomitant]
     Active Substance: CHLORHEXIDINE\CHLORHEXIDINE GLUCONATE
     Dosage: SOL 0.12%
  9. FLUTICASONE [Concomitant]
     Active Substance: FLUTICASONE
     Dosage: SUS 50MCG/AC
  10. FUROSEMIDE [Concomitant]
     Active Substance: FUROSEMIDE
     Dosage: TAB 40MG
  11. HYDROCODONE [Concomitant]
     Active Substance: HYDROCODONE
     Dosage: SOL 10- 325MG
  12. LATANOPROST [Concomitant]
     Active Substance: LATANOPROST
     Dosage: SOL 0.005%
  13. LEVOCETIRIZINE [Concomitant]
     Active Substance: LEVOCETIRIZINE
     Dosage: TAB 5MG
  14. LISINOPRIL [Concomitant]
     Active Substance: LISINOPRIL
     Dosage: TAB 30MG
  15. LYRICA [Concomitant]
     Active Substance: PREGABALIN
     Dosage: CAP 200MG
  16. METOPROLOL [Concomitant]
     Active Substance: METOPROLOL
     Dosage: S TB2 100MG,
  17. METOPROLOL SUCCINATE [Concomitant]
     Active Substance: METOPROLOL SUCCINATE
     Dosage: TB2 200MG
  18. MONTELUKAST [Concomitant]
     Active Substance: MONTELUKAST SODIUM
     Dosage: TAB 10MG
  19. MUPIROCIN [Concomitant]
     Active Substance: MUPIROCIN
  20. OXYCODONE [Concomitant]
     Active Substance: OXYCODONE
     Dosage: OXYCODONE-AC TAB 10-325MG
  21. POTASSIUM [Concomitant]
     Active Substance: POTASSIUM
     Dosage: PAC 20MEQ
  22. SPIRIVA [Concomitant]
     Active Substance: TIOTROPIUM BROMIDE MONOHYDRATE
     Dosage: CAP 18MCG
  23. TIMOLOL MALEATE [Concomitant]
     Active Substance: TIMOLOL MALEATE
     Dosage: SOL 0.25%
  24. TIZANIDINE [Concomitant]
     Active Substance: TIZANIDINE
     Dosage: H TAB 4MG
  25. VENTOLIN [Concomitant]
     Active Substance: ALBUTEROL SULFATE
     Dosage: HFA AER 108

REACTIONS (2)
  - Death [Fatal]
  - Off label use [Unknown]
